FAERS Safety Report 8788813 (Version 3)
Quarter: 2013Q1

REPORT INFORMATION
  Report Type: Report from Study
  Country: JP (occurrence: JP)
  Receive Date: 20120917
  Receipt Date: 20130215
  Transmission Date: 20140127
  Serious: Yes (Hospitalization, Other)
  Sender: FDA-Public Use
  Company Number: JP-009507513-2012SP028318

PATIENT
  Age: 62 Year
  Sex: Male
  Weight: 71 kg

DRUGS (26)
  1. PEGINTRON [Suspect]
     Indication: CHRONIC HEPATITIS C
     Dosage: 1.12 MICROGRAM PER KILOGRAM, QW
     Route: 058
     Dates: start: 20120314
  2. PEGINTRON [Suspect]
     Dosage: 0.84 MICROGRAM, QW
     Route: 058
     Dates: start: 20120412, end: 20120509
  3. PEGINTRON [Suspect]
     Dosage: 0.98 MICROGRAM, QW
     Route: 058
     Dates: start: 20120510, end: 20120621
  4. PEGINTRON [Suspect]
     Dosage: 0.84 MICROGRAM, QW
     Route: 058
     Dates: start: 20120628, end: 20120712
  5. PEGINTRON [Suspect]
     Dosage: 0.98 MICROGRAM, QW
     Route: 058
     Dates: start: 20120719, end: 20120823
  6. REBETOL [Suspect]
     Indication: CHRONIC HEPATITIS C
     Dosage: 400 MG, QD
     Route: 048
     Dates: start: 20120314, end: 20120509
  7. REBETOL [Suspect]
     Dosage: 600 MG, QD
     Route: 048
     Dates: start: 20120510, end: 20120606
  8. REBETOL [Suspect]
     Dosage: 400 MG, QD
     Route: 048
     Dates: start: 20120607, end: 20120620
  9. REBETOL [Suspect]
     Dosage: 200 MG, QD
     Route: 048
     Dates: start: 20120621, end: 20120711
  10. REBETOL [Suspect]
     Dosage: 400 MG, QD
     Route: 048
     Dates: start: 20120712, end: 20120906
  11. TELAVIC [Suspect]
     Indication: CHRONIC HEPATITIS C
     Dosage: 2250 MG, QD
     Route: 048
     Dates: start: 20120314, end: 20120320
  12. TELAVIC [Suspect]
     Dosage: 750 MG, QD
     Route: 048
     Dates: start: 20120321, end: 20120501
  13. TELAVIC [Suspect]
     Dosage: 1.5 G, QD
     Route: 048
     Dates: start: 20120502, end: 20120531
  14. URSO [Concomitant]
     Indication: CHRONIC HEPATITIS C
     Dosage: 900 MG, QD
     Route: 048
     Dates: start: 20030920, end: 20120410
  15. URSO [Concomitant]
     Dosage: 600 MG, QD
     Route: 048
     Dates: start: 20120411
  16. BLOPRESS [Concomitant]
     Indication: HYPERTENSION
     Dosage: 4 MG, QD
     Route: 048
     Dates: start: 20040628
  17. ZYLORIC [Concomitant]
     Indication: HYPERURICAEMIA
     Dosage: 100 MG, QD
     Route: 048
     Dates: start: 20050920
  18. ARNICA (+) ECHINACEA ANGUSTIFOLIA (+) EUROPEAN GOLDENROD (+) HORSETAIL [Concomitant]
     Indication: HYPERURICAEMIA
     Dosage: 6 DF, QD
     Route: 048
     Dates: start: 20050920
  19. ALINAMIN F (FURSULTIAMINE HYDROCHLORIDE) [Concomitant]
     Indication: HYPOVITAMINOSIS
     Dosage: 75 MG, QD
     Route: 048
     Dates: start: 20100629
  20. FERROMIA [Concomitant]
     Indication: IRON DEFICIENCY ANAEMIA
     Dosage: 50 MG, QD
     Route: 048
     Dates: start: 20120228, end: 20120426
  21. MYSER (CYCLOSERINE) [Concomitant]
     Indication: PROPHYLAXIS
     Dosage: UNK, Q.S/DAY
     Route: 061
     Dates: start: 20120426
  22. ALLOPURINOL [Concomitant]
     Indication: HYPERURICAEMIA
     Dosage: 100 MG, QD
     Route: 048
  23. URSODIOL [Concomitant]
     Indication: HEPATITIS C
     Dosage: 600 MG, QD
     Route: 048
  24. TALION (BEPOTASTINE BESYLATE) [Concomitant]
     Indication: PROPHYLAXIS
     Dosage: 20 MG, QD
     Route: 048
     Dates: start: 20120314, end: 20120705
  25. LANSOPRAZOLE [Concomitant]
     Indication: GASTRIC ULCER
     Dosage: 15 MG, QD
     Route: 048
     Dates: start: 20090626
  26. URALYT [Concomitant]
     Indication: HYPERURICAEMIA
     Dosage: 6 DF, QD
     Route: 048
     Dates: start: 20050920

REACTIONS (2)
  - Blood creatinine increased [Recovered/Resolved]
  - White blood cell count decreased [Recovered/Resolved]
